FAERS Safety Report 9399290 (Version 1)
Quarter: 2013Q3

REPORT INFORMATION
  Report Type: Spontaneous
  Country: US (occurrence: None)
  Receive Date: 20130709
  Receipt Date: 20130709
  Transmission Date: 20140515
  Serious: Yes (Other)
  Sender: FDA-Public Use
  Company Number: AUR-APL-2013-05723

PATIENT
  Age: 47 Year
  Sex: Female

DRUGS (5)
  1. PRAMIPEXOLE [Suspect]
     Indication: PARKINSON^S DISEASE
  2. ROPINROLE HYDROCHLORIDE [Suspect]
     Indication: PARKINSON^S DISEASE
     Dosage: 16MG (4 MG, 4 IN 1 D)
  3. PARCOPA [Suspect]
     Indication: PARKINSON^S DISEASE
     Dosage: 25/100, THREE TABLETS FOUR
  4. BENZTROPINE MESYLATE (BENZATROPINE MESILATE) [Concomitant]
  5. SINEMET [Concomitant]

REACTIONS (5)
  - Dystonia [None]
  - Dyskinesia [None]
  - Energy increased [None]
  - Anhedonia [None]
  - Depression [None]
